FAERS Safety Report 4364228-1 (Version None)
Quarter: 2004Q2

REPORT INFORMATION
  Report Type: 
  Country: None (occurrence: None)
  Receive Date: 20040525
  Receipt Date: 20040504
  Transmission Date: 20050107
  Serious: Yes (Hospitalization)
  Sender: FDA-Public Use
  Company Number: FR-BRISTOL-MYERS SQUIBB COMPANY-12579843

PATIENT
  Age: 63 Year
  Sex: Male
  Weight: 47 kg

DRUGS (5)
  1. TAXOL [Suspect]
     Indication: NEOPLASM
     Route: 042
  2. CARBOPLATIN [Suspect]
     Indication: NEOPLASM
     Route: 042
  3. MORPHINE SULFATE [Concomitant]
  4. DURAGESIC [Concomitant]
     Dosage: 75 MCG
  5. RADIOTHERAPY [Concomitant]

REACTIONS (9)
  - AGEUSIA [None]
  - ANAEMIA [None]
  - APTYALISM [None]
  - DRUG ERUPTION [None]
  - HYPERTHERMIA [None]
  - INFECTION [None]
  - SALIVA ALTERED [None]
  - STOMATITIS [None]
  - THROMBOCYTOPENIA [None]
